FAERS Safety Report 6664561-4 (Version None)
Quarter: 2010Q2

REPORT INFORMATION
  Report Type: 
  Country: None (occurrence: None)
  Receive Date: 20100401
  Receipt Date: 20100318
  Transmission Date: 20101027
  Serious: No
  Sender: FDA-Public Use
  Company Number: US-B.I. PHARMACEUTICALS,INC./RIDGEFIELD-2010-BP-02295BP

PATIENT
  Age: 38 Year
  Sex: Female

DRUGS (3)
  1. MIRAPEX [Suspect]
     Indication: RESTLESS LEGS SYNDROME
     Route: 048
     Dates: start: 20090107, end: 20090501
  2. CELEXA [Concomitant]
     Indication: DEPRESSION
  3. PHENIRAMINE [Concomitant]
     Indication: DEPRESSION

REACTIONS (1)
  - PATHOLOGICAL GAMBLING [None]
